FAERS Safety Report 6460676-4 (Version None)
Quarter: 2009Q4

REPORT INFORMATION
  Report Type: 
  Country: None (occurrence: None)
  Receive Date: 20091125
  Receipt Date: 20091125
  Transmission Date: 20100525
  Serious: No
  Sender: FDA-Public Use
  Company Number: None

PATIENT
  Age: 45 Year
  Sex: Male
  Weight: 65.7716 kg

DRUGS (3)
  1. NASAL GEL SPRAY [Suspect]
     Dosage: UKN
     Dates: start: 20070301, end: 20090601
  2. SIMVASTATIN [Concomitant]
  3. PROPEOIA [Concomitant]

REACTIONS (1)
  - ANOSMIA [None]
